FAERS Safety Report 8491708-X (Version None)
Quarter: 2012Q3

REPORT INFORMATION
  Report Type: 
  Country: None (occurrence: None)
  Receive Date: 20120706
  Receipt Date: 20120626
  Transmission Date: 20120928
  Serious: Yes (Other)
  Sender: FDA-Public Use
  Company Number: FR-BRISTOL-MYERS SQUIBB COMPANY-16587800

PATIENT
  Age: 65 Year
  Sex: Male
  Weight: 88 kg

DRUGS (11)
  1. COLCHICINE [Concomitant]
     Indication: GOUT
     Dates: end: 20110920
  2. CETUXIMAB [Suspect]
     Indication: HEAD AND NECK CANCER
     Dosage: 485MG/M2,EARLIER DOSE:250MG/M2
     Route: 042
     Dates: start: 20110725, end: 20110830
  3. FLUOROURACIL [Suspect]
     Indication: HEAD AND NECK CANCER
     Dosage: 6000MG/M2,1200MG
     Dates: start: 20110516, end: 20110610
  4. CISPLATIN [Suspect]
     Indication: HEAD AND NECK CANCER
     Dosage: PREVIOUS DOSE: 150MG
     Dates: start: 20110516, end: 20110627
  5. ORAMORPH SR [Concomitant]
     Indication: PAIN
  6. LYRICA [Concomitant]
     Indication: PAIN
     Dates: end: 20110920
  7. METOPROLOL TARTRATE [Concomitant]
     Indication: HYPERTENSION
  8. DURAGESIC-100 [Concomitant]
     Indication: CONSTIPATION
  9. DURAGESIC-100 [Concomitant]
     Indication: PAIN
  10. DOCETAXEL [Suspect]
     Indication: HEAD AND NECK CANCER
     Dosage: PREVIOUS DOSE: 150MG
     Dates: start: 20110516, end: 20110627
  11. ORAMORPH SR [Concomitant]
     Indication: CONSTIPATION

REACTIONS (5)
  - FEBRILE NEUTROPENIA [None]
  - STAPHYLOCOCCAL SEPSIS [None]
  - DERMATITIS [None]
  - MUCOSAL INFLAMMATION [None]
  - DYSPHAGIA [None]
